FAERS Safety Report 23161431 (Version 2)
Quarter: 2023Q4

REPORT INFORMATION
  Report Type: Spontaneous
  Country: PE (occurrence: PE)
  Receive Date: 20231108
  Receipt Date: 20231115
  Transmission Date: 20240109
  Serious: Yes (Death, Disabling, Other)
  Sender: FDA-Public Use
  Company Number: PE-BoehringerIngelheim-2023-BI-271759

PATIENT
  Age: 87 Year
  Sex: Female

DRUGS (3)
  1. SPIRIVA RESPIMAT [Suspect]
     Active Substance: TIOTROPIUM BROMIDE
     Indication: Pulmonary fibrosis
     Dates: start: 2014, end: 2017
  2. SPIRIVA RESPIMAT [Suspect]
     Active Substance: TIOTROPIUM BROMIDE
     Indication: Chronic obstructive pulmonary disease
  3. SPIRIVA RESPIMAT [Suspect]
     Active Substance: TIOTROPIUM BROMIDE
     Indication: Asthma

REACTIONS (5)
  - Cerebral haemorrhage [Fatal]
  - Apallic syndrome [Fatal]
  - Fall [Unknown]
  - Incorrect route of product administration [Unknown]
  - Intentional product use issue [Unknown]

NARRATIVE: CASE EVENT DATE: 20160101
